FAERS Safety Report 23050607 (Version 1)
Quarter: 2023Q4

REPORT INFORMATION
  Report Type: Report from Study
  Country: DE (occurrence: DE)
  Receive Date: 20231010
  Receipt Date: 20231010
  Transmission Date: 20240109
  Serious: Yes (Other)
  Sender: FDA-Public Use
  Company Number: DE-SUN PHARMACEUTICAL INDUSTRIES LTD-2023RR-393309

PATIENT
  Age: 38 Year
  Sex: Female
  Weight: 124 kg

DRUGS (3)
  1. TILDRAKIZUMAB [Suspect]
     Active Substance: TILDRAKIZUMAB
     Indication: Psoriasis
     Dosage: 100 MILLIGRAM, BID
     Route: 058
     Dates: start: 20200402
  2. TILDRAKIZUMAB [Suspect]
     Active Substance: TILDRAKIZUMAB
     Indication: Psoriatic arthropathy
     Dosage: 100 MILLIGRAM, SECOND INJECTION
     Route: 058
     Dates: start: 20200706
  3. TILDRAKIZUMAB [Suspect]
     Active Substance: TILDRAKIZUMAB
     Dosage: 100 MILLIGRAM, EVERY 8 WEEKS, THIRD INJECTION,
     Route: 058

REACTIONS (1)
  - Gastric bypass [Recovered/Resolved]

NARRATIVE: CASE EVENT DATE: 20230317
